FAERS Safety Report 9613237 (Version 1)
Quarter: 2013Q4

REPORT INFORMATION
  Report Type: Spontaneous
  Country: IT (occurrence: IT)
  Receive Date: 20131010
  Receipt Date: 20131010
  Transmission Date: 20140711
  Serious: Yes (Hospitalization)
  Sender: FDA-Public Use
  Company Number: IT-GLAXOSMITHKLINE-B0926889A

PATIENT
  Age: 72 Year
  Sex: Male

DRUGS (8)
  1. RYTMONORM [Suspect]
     Indication: PRODUCT USED FOR UNKNOWN INDICATION
     Dosage: 600MG PER DAY
     Route: 048
     Dates: start: 20130827, end: 20130903
  2. ZOLPIDEM [Concomitant]
  3. ESOMEPRAZOLE MAGNESIUM [Concomitant]
  4. CARDIOASPIRIN [Concomitant]
  5. ANSIMAR [Concomitant]
  6. FLIXOTIDE [Concomitant]
     Indication: CHRONIC OBSTRUCTIVE PULMONARY DISEASE
  7. FORADIL [Concomitant]
  8. SPIRIVA [Concomitant]

REACTIONS (5)
  - Bundle branch block right [Recovering/Resolving]
  - Abdominal pain upper [Recovering/Resolving]
  - Dyspepsia [Unknown]
  - Eructation [Unknown]
  - Tachycardia [Unknown]
